FAERS Safety Report 4931267-9 (Version None)
Quarter: 2006Q1

REPORT INFORMATION
  Report Type: 
  Country: None (occurrence: None)
  Receive Date: 20060227
  Receipt Date: 20060214
  Transmission Date: 20060701
  Serious: Yes (Other)
  Sender: FDA-Public Use
  Company Number: 2006-DE-00830GD

PATIENT
  Age: 47 Year
  Sex: Female

DRUGS (3)
  1. HYDROCHLOROTHIAZIDE [Suspect]
     Indication: HYPERTENSION
     Dosage: PO
     Route: 048
  2. PREDNISONE TAB [Suspect]
     Indication: SWELLING FACE
     Dosage: 40 MG
  3. LISINOPRIL [Concomitant]

REACTIONS (10)
  - CHEILITIS [None]
  - DERMATITIS CONTACT [None]
  - DROOLING [None]
  - DRUG ERUPTION [None]
  - DRUG INEFFECTIVE [None]
  - EATING DISORDER [None]
  - LIP EROSION [None]
  - PHOTOSENSITIVITY REACTION [None]
  - SPEECH DISORDER [None]
  - SWELLING FACE [None]
